FAERS Safety Report 23429701 (Version 2)
Quarter: 2024Q1

REPORT INFORMATION
  Report Type: Spontaneous
  Country: US (occurrence: US)
  Receive Date: 20240122
  Receipt Date: 20240129
  Transmission Date: 20240409
  Serious: Yes (Other)
  Sender: FDA-Public Use
  Company Number: US-PFIZER INC-PV202300075494

PATIENT
  Age: 85 Year
  Sex: Female

DRUGS (4)
  1. IBRANCE [Suspect]
     Active Substance: PALBOCICLIB
     Dosage: 125 MG BY MOUTH DAILY X21 DAYS, WITH 1 WEEK OFF TO COMPLETE A 28 DAY CYCLE
     Route: 048
     Dates: start: 202201
  2. IBRANCE [Suspect]
     Active Substance: PALBOCICLIB
     Dosage: 1 TABLET (125 MG TOTAL) ONCE DAILY FOR 21 DAYS, FOLLOWED BY 7 DAYS OFF TO COMPLETE A 28 DAY CYCLE
     Route: 048
  3. IBRANCE [Suspect]
     Active Substance: PALBOCICLIB
     Dosage: 1 TABLET (75 MG TOTAL)ONCE DAILY TAKE WITH FOOD FOR 21 DAYS, THEN 7 DAYS OFF.
     Route: 048
  4. FULVESTRANT [Concomitant]
     Active Substance: FULVESTRANT
     Dosage: 500 MG IM ON D1, 15 AND 29, FOLLOWED BY 500 MG IM EVERY 28 DAYS THEREAFTER
     Route: 030

REACTIONS (4)
  - Pancytopenia [Unknown]
  - Blood sodium decreased [Unknown]
  - Aspartate aminotransferase increased [Unknown]
  - Blood albumin decreased [Unknown]
